FAERS Safety Report 7684471-3 (Version None)
Quarter: 2011Q3

REPORT INFORMATION
  Report Type: 
  Country: None (occurrence: None)
  Receive Date: 20110816
  Receipt Date: 20110805
  Transmission Date: 20111222
  Serious: No
  Sender: FDA-Public Use
  Company Number: US-BIOGENIDEC-2011BI027694

PATIENT
  Age: 50 Year
  Sex: Female

DRUGS (2)
  1. AVONEX [Concomitant]
     Indication: MULTIPLE SCLEROSIS
     Route: 030
  2. TYSABRI [Suspect]
     Indication: MULTIPLE SCLEROSIS
     Route: 042
     Dates: start: 20090126, end: 20110701

REACTIONS (8)
  - ARTHRALGIA [None]
  - HYPOAESTHESIA [None]
  - FATIGUE [None]
  - SENSATION OF HEAVINESS [None]
  - MULTIPLE SCLEROSIS [None]
  - MUSCULAR WEAKNESS [None]
  - PAIN [None]
  - ARTHRITIS [None]
